FAERS Safety Report 7221666-7 (Version None)
Quarter: 2011Q1

REPORT INFORMATION
  Report Type: 
  Country: None (occurrence: None)
  Receive Date: 20110112
  Receipt Date: 20110103
  Transmission Date: 20110831
  Serious: Yes (Other)
  Sender: FDA-Public Use
  Company Number: US-ROCHE-751690

PATIENT
  Sex: Female

DRUGS (2)
  1. BEVACIZUMAB [Suspect]
     Route: 065
  2. ROMIPLOSTIM [Suspect]
     Indication: IDIOPATHIC THROMBOCYTOPENIC PURPURA
     Dosage: DRUG REPORTED AS NPLATE
     Route: 065
     Dates: start: 20090928, end: 20100312

REACTIONS (2)
  - HYPERTENSION [None]
  - RENAL FAILURE [None]
